FAERS Safety Report 4996895-3 (Version None)
Quarter: 2006Q2

REPORT INFORMATION
  Report Type: 
  Country: None (occurrence: None)
  Receive Date: 20060508
  Receipt Date: 20060508
  Transmission Date: 20061013
  Serious: Yes (Hospitalization)
  Sender: FDA-Public Use
  Company Number: None

PATIENT
  Age: 78 Year
  Sex: Male

DRUGS (1)
  1. TARCEVA [Suspect]
     Indication: PROSTATE CANCER
     Dosage: 150 MG PO QD
     Route: 048
     Dates: start: 20060111, end: 20060302

REACTIONS (11)
  - ANAEMIA [None]
  - BODY TEMPERATURE INCREASED [None]
  - CATHETER RELATED COMPLICATION [None]
  - CELLULITIS [None]
  - DRUG THERAPY CHANGED [None]
  - ESCHERICHIA URINARY TRACT INFECTION [None]
  - GASTROINTESTINAL HAEMORRHAGE [None]
  - HAEMATOCHEZIA [None]
  - HAEMATURIA [None]
  - THROMBOSIS [None]
  - ULCER [None]
